FAERS Safety Report 26142984 (Version 1)
Quarter: 2025Q4

REPORT INFORMATION
  Report Type: Spontaneous
  Country: US (occurrence: US)
  Receive Date: 20251211
  Receipt Date: 20251211
  Transmission Date: 20260117
  Serious: Yes (Other)
  Sender: ALVOGEN
  Company Number: US-ALVOGEN-2025098424

PATIENT
  Sex: Female

DRUGS (1)
  1. LEVOTHYROXINE [Suspect]
     Active Substance: LEVOTHYROXINE
     Indication: Hypothyroidism
     Dosage: EXPIRATION DATE: JUNE-2027
     Dates: start: 20250518

REACTIONS (2)
  - Heart rate irregular [Not Recovered/Not Resolved]
  - Adverse event [Not Recovered/Not Resolved]

NARRATIVE: CASE EVENT DATE: 20250101
